FAERS Safety Report 10975675 (Version 1)
Quarter: 2015Q2

REPORT INFORMATION
  Report Type: Spontaneous
  Country: US (occurrence: US)
  Receive Date: 20150401
  Receipt Date: 20150401
  Transmission Date: 20150821
  Serious: Yes (Hospitalization, Other)
  Sender: FDA-Public Use
  Company Number: US-PFIZER INC-2015109408

PATIENT
  Age: 44 Year
  Sex: Male
  Weight: 87 kg

DRUGS (8)
  1. ASPIRIN. [Concomitant]
     Active Substance: ASPIRIN
     Indication: THROMBOSIS
     Dosage: 81 MG, UNK
  2. ACCUPRIL [Concomitant]
     Active Substance: QUINAPRIL HYDROCHLORIDE
     Dosage: 10 MG, UNK
  3. OMEGA 3 ACID [Concomitant]
     Indication: DIABETES MELLITUS
     Dosage: 2 DF, 2X/DAY
  4. LEVEMIR [Concomitant]
     Active Substance: INSULIN DETEMIR
     Indication: DIABETES MELLITUS
     Dosage: 24 IU, UNK
  5. LIPITOR [Suspect]
     Active Substance: ATORVASTATIN CALCIUM
     Indication: BLOOD CHOLESTEROL ABNORMAL
     Dosage: 80 MG, 1X/DAY
     Dates: start: 2009
  6. DILANTIN [Concomitant]
     Active Substance: PHENYTOIN
     Indication: ANTICOAGULANT THERAPY
     Dosage: 90 MG, UNK
  7. NOVOLOG [Concomitant]
     Active Substance: INSULIN ASPART
     Indication: DIABETES MELLITUS
     Dosage: UNK
  8. COREG [Concomitant]
     Active Substance: CARVEDILOL
     Indication: CARDIAC DISORDER
     Dosage: 6.25 MG, UNK

REACTIONS (1)
  - Myocardial infarction [Recovered/Resolved]

NARRATIVE: CASE EVENT DATE: 20150322
